FAERS Safety Report 4278321-5 (Version None)
Quarter: 2004Q1

REPORT INFORMATION
  Report Type: 
  Country: None (occurrence: None)
  Receive Date: 20040121
  Receipt Date: 20040106
  Transmission Date: 20041129
  Serious: Yes (Other)
  Sender: FDA-Public Use
  Company Number: USA040155894

PATIENT
  Age: 10 Year
  Sex: Male
  Weight: 33 kg

DRUGS (4)
  1. ZYPREXA [Suspect]
     Indication: OFF LABEL USE
  2. STRATTERA [Suspect]
     Indication: ATTENTION DEFICIT/HYPERACTIVITY DISORDER
     Dosage: 60 MG/DAY
     Dates: start: 20030801
  3. DEPAKOTE [Concomitant]
  4. TEGRETOL [Concomitant]

REACTIONS (10)
  - ABNORMAL BEHAVIOUR [None]
  - DECREASED APPETITE [None]
  - DIZZINESS [None]
  - HOMICIDAL IDEATION [None]
  - OFF LABEL USE [None]
  - PERIPHERAL COLDNESS [None]
  - POOR PERIPHERAL CIRCULATION [None]
  - PULSE ABNORMAL [None]
  - SKIN DISCOLOURATION [None]
  - TACHYCARDIA [None]
